FAERS Safety Report 7978379-3 (Version None)
Quarter: 2011Q4

REPORT INFORMATION
  Report Type: 
  Country: None (occurrence: None)
  Receive Date: 20111214
  Receipt Date: 20111212
  Transmission Date: 20120403
  Serious: Yes (Other)
  Sender: FDA-Public Use
  Company Number: JP-PFIZER INC-2011301587

PATIENT
  Sex: Female

DRUGS (2)
  1. LOXONIN [Concomitant]
     Dosage: UNK
  2. ZITHROMAX [Suspect]
     Dosage: 2 G, SINGLE
     Route: 048

REACTIONS (3)
  - FAECES PALE [None]
  - DIARRHOEA [None]
  - HAEMATOCHEZIA [None]
